FAERS Safety Report 7219208-5 (Version None)
Quarter: 2011Q1

REPORT INFORMATION
  Report Type: 
  Country: None (occurrence: None)
  Receive Date: 20110111
  Receipt Date: 20110104
  Transmission Date: 20110831
  Serious: Yes (Hospitalization, Other)
  Sender: FDA-Public Use
  Company Number: US-NAPPMUNDI-USA-2010-0058177

PATIENT
  Sex: Female

DRUGS (1)
  1. OXYCONTIN [Suspect]
     Indication: PAIN
     Dosage: 80 MG, Q12H
     Route: 048
     Dates: start: 20030925

REACTIONS (8)
  - NAUSEA [None]
  - DIARRHOEA [None]
  - PNEUMONIA [None]
  - DEVICE RELATED INFECTION [None]
  - VOMITING [None]
  - MEDICAL DEVICE COMPLICATION [None]
  - DRUG WITHDRAWAL SYNDROME [None]
  - DECREASED APPETITE [None]
